FAERS Safety Report 8905936 (Version 1)
Quarter: 2012Q4

REPORT INFORMATION
  Report Type: 
  Country: ES (occurrence: ES)
  Receive Date: 20121113
  Receipt Date: 20121113
  Transmission Date: 20130627
  Serious: Yes (Other)
  Sender: FDA-Public Use
  Company Number: ES-B.I. PHARMACEUTICALS,INC./RIDGEFIELD-2012-ES-00430ES

PATIENT
  Age: 63 Year
  Sex: Female

DRUGS (6)
  1. MIRAPEXIN [Suspect]
     Indication: PARKINSONISM
     Dosage: 1.05 mg
     Route: 048
     Dates: start: 20120816, end: 20120827
  2. SINEMET [Suspect]
     Indication: PARKINSONISM
     Dosage: 300 mg
     Route: 048
     Dates: start: 20120816
  3. ACETILSALICILICO ACID [Concomitant]
     Dosage: 300 mg
     Route: 048
     Dates: start: 20120815
  4. BEMIPARINA [Concomitant]
     Indication: THROMBOSIS PROPHYLAXIS
     Dosage: 3500 U
     Route: 058
     Dates: start: 20120815
  5. OMEPRAZOLE [Concomitant]
     Indication: PROPHYLAXIS
     Dosage: 20 mg
     Route: 048
     Dates: start: 20120815
  6. PRIMPERAN [Concomitant]
     Indication: NAUSEA
     Dosage: 24 mg
     Route: 048
     Dates: start: 20120815

REACTIONS (1)
  - Acute psychosis [Not Recovered/Not Resolved]
